FAERS Safety Report 12884986 (Version 1)
Quarter: 2016Q4

REPORT INFORMATION
  Report Type: Spontaneous
  Country: MX (occurrence: MX)
  Receive Date: 20161026
  Receipt Date: 20161026
  Transmission Date: 20170207
  Serious: Yes (Other)
  Sender: FDA-Public Use
  Company Number: MX-TEVA-706241ISR

PATIENT
  Age: 19 Year
  Sex: Female
  Weight: 51 kg

DRUGS (2)
  1. HANYCOT OXYTOCIN [Suspect]
     Active Substance: OXYTOCIN
     Indication: LABOUR INDUCTION
     Route: 041
     Dates: start: 20081118, end: 20081118
  2. HANYCOT OXYTOCIN [Suspect]
     Active Substance: OXYTOCIN
     Indication: UTERINE ATONY

REACTIONS (4)
  - Drug ineffective [Unknown]
  - Hypotension [Recovered/Resolved]
  - Third stage postpartum haemorrhage [Recovered/Resolved]
  - Uterine hypotonus [Recovered/Resolved]

NARRATIVE: CASE EVENT DATE: 20081118
